FAERS Safety Report 6867775-3 (Version None)
Quarter: 2010Q3

REPORT INFORMATION
  Report Type: 
  Country: None (occurrence: None)
  Receive Date: 20100722
  Receipt Date: 20100709
  Transmission Date: 20110219
  Serious: No
  Sender: FDA-Public Use
  Company Number: DE-ELI_LILLY_AND_COMPANY-DE201007002474

PATIENT
  Age: 71 Year
  Sex: Male

DRUGS (2)
  1. CIALIS [Suspect]
     Indication: ERECTILE DYSFUNCTION
     Route: 048
     Dates: start: 20000101
  2. CYPROTERONACETAT-GRY [Concomitant]

REACTIONS (2)
  - MACULOPATHY [None]
  - VISION BLURRED [None]
